FAERS Safety Report 8465413-X (Version None)
Quarter: 2012Q2

REPORT INFORMATION
  Report Type: 
  Country: None (occurrence: None)
  Receive Date: 20120626
  Receipt Date: 20120618
  Transmission Date: 20120825
  Serious: Yes (Hospitalization, Other)
  Sender: FDA-Public Use
  Company Number: US-BAYER-2012-062061

PATIENT
  Age: 35 Year
  Sex: Female
  Weight: 116 kg

DRUGS (22)
  1. LOMOTIL [Concomitant]
     Dosage: UNK
     Route: 048
     Dates: start: 20110722
  2. PERCOCET [Concomitant]
     Dosage: UNK
     Route: 048
     Dates: start: 20110722
  3. SODIUM CHLORIDE [Concomitant]
     Dosage: 1000 ML, UNK
     Route: 042
     Dates: start: 20110722
  4. ZYRTEC [Concomitant]
  5. TENORMIN [Concomitant]
  6. LIBRIUM [Concomitant]
     Dosage: UNK
     Route: 048
     Dates: start: 20100106
  7. DEPAKOTE [Concomitant]
     Dosage: 500 MG, UNK
     Route: 048
     Dates: start: 20100112
  8. BENADRYL [Concomitant]
     Dosage: UNK UNK, PRN
     Dates: start: 20100221
  9. BENTYL [Concomitant]
     Dosage: UNK
     Route: 048
     Dates: start: 20110722
  10. ONDANSETRON (ZOFRAN) [Concomitant]
     Dosage: 4 MG, UNK
     Route: 042
     Dates: start: 20110722
  11. HYDROMORPHONE HCL [Concomitant]
     Dosage: 2 MG, UNK
     Route: 042
     Dates: start: 20110722
  12. XANAX [Concomitant]
  13. ZOLOFT [Concomitant]
     Dosage: 50 MG, UNK
     Route: 048
     Dates: start: 20100221
  14. PROTONIX [Concomitant]
     Dosage: 40 MG, UNK
     Route: 048
     Dates: start: 20100112
  15. PROCTOFOAM [Concomitant]
     Dosage: UNK
     Route: 061
     Dates: start: 20110722
  16. MORPHINE SULFATE [Concomitant]
     Dosage: 4 MG, UNK
     Route: 042
     Dates: start: 20110722
  17. YAZ [Suspect]
     Indication: MENORRHAGIA
  18. YASMIN [Suspect]
  19. ATENOLOL [Concomitant]
     Dosage: 50 MG, UNK
     Route: 048
     Dates: start: 20100221
  20. OMEPRAZOLE [Concomitant]
     Dosage: 20 MG, UNK
     Route: 048
     Dates: start: 20100221
  21. PROMETHAZINE [Concomitant]
     Dosage: 12.5 MG, UNK
     Route: 042
     Dates: start: 20110722
  22. LORTAB [Concomitant]

REACTIONS (3)
  - PULMONARY EMBOLISM [None]
  - DEEP VEIN THROMBOSIS [None]
  - BILIARY DYSKINESIA [None]
